FAERS Safety Report 8301367-4 (Version None)
Quarter: 2012Q2

REPORT INFORMATION
  Report Type: 
  Country: None (occurrence: None)
  Receive Date: 20120420
  Receipt Date: 20120419
  Transmission Date: 20120825
  Serious: Yes (Hospitalization, Other)
  Sender: FDA-Public Use
  Company Number: DE-ABBOTT-11P-062-0868894-00

PATIENT
  Sex: Male

DRUGS (4)
  1. IBUPROFEN [Concomitant]
     Indication: RHEUMATOID ARTHRITIS
  2. HUMIRA [Suspect]
     Indication: RHEUMATOID ARTHRITIS
     Route: 058
     Dates: start: 20080101, end: 20120101
  3. HUMIRA [Suspect]
     Dates: start: 20120225
  4. ARCOXIA [Concomitant]
     Indication: PRODUCT USED FOR UNKNOWN INDICATION

REACTIONS (5)
  - ACCIDENT [None]
  - ASTHMA [None]
  - DYSPHAGIA [None]
  - OSTEOARTHRITIS [None]
  - LIGAMENT RUPTURE [None]
